FAERS Safety Report 5022711-X (Version None)
Quarter: 2006Q2

REPORT INFORMATION
  Report Type: 
  Country: None (occurrence: None)
  Receive Date: 20060605
  Receipt Date: 20060517
  Transmission Date: 20061013
  Serious: Yes (Life-Threatening, Hospitalization)
  Sender: FDA-Public Use
  Company Number: GR200604001686

PATIENT
  Age: 76 Year
  Sex: Male
  Weight: 85 kg

DRUGS (3)
  1. PEMETREXED (PEMETREXED) VIAL [Suspect]
     Indication: NON-SMALL CELL LUNG CANCER
     Dosage: OTHER, INTRAVENOUS
     Route: 042
     Dates: start: 20060308, end: 20060308
  2. FUCIDIN (FUSIDIC ACID) [Concomitant]
  3. ZOMETA [Concomitant]

REACTIONS (4)
  - ERYTHEMA MULTIFORME [None]
  - JAUNDICE [None]
  - NEUTROPENIA [None]
  - THROMBOCYTOPENIA [None]
